FAERS Safety Report 4700461-4 (Version None)
Quarter: 2005Q2

REPORT INFORMATION
  Report Type: 
  Country: None (occurrence: None)
  Receive Date: 20050627
  Receipt Date: 20050427
  Transmission Date: 20051028
  Serious: Yes (Death, Life-Threatening, Hospitalization)
  Sender: FDA-Public Use
  Company Number: GB-ROCHE-403200

PATIENT
  Age: 44 Year
  Sex: Female

DRUGS (70)
  1. DACLIZUMAB [Suspect]
     Route: 042
     Dates: start: 20050415, end: 20050415
  2. DACLIZUMAB [Suspect]
     Route: 042
     Dates: start: 20050422, end: 20050422
  3. MYCOPHENOLATE MOFETIL [Suspect]
     Route: 042
     Dates: start: 20050415, end: 20050415
  4. MYCOPHENOLATE MOFETIL [Suspect]
     Route: 042
     Dates: start: 20050416, end: 20050418
  5. MYCOPHENOLATE MOFETIL [Suspect]
     Route: 042
     Dates: start: 20050419, end: 20050419
  6. MYCOPHENOLATE MOFETIL [Suspect]
     Route: 048
     Dates: start: 20050420, end: 20050423
  7. MYCOPHENOLATE MOFETIL [Suspect]
     Route: 048
     Dates: start: 20050424, end: 20050424
  8. MYCOPHENOLATE MOFETIL [Suspect]
     Route: 048
     Dates: start: 20050426, end: 20050426
  9. MYCOPHENOLATE MOFETIL [Suspect]
     Route: 048
     Dates: start: 20050427, end: 20050504
  10. MYCOPHENOLATE MOFETIL [Suspect]
     Route: 048
     Dates: start: 20050505, end: 20050505
  11. MYCOPHENOLATE MOFETIL [Suspect]
     Route: 048
     Dates: start: 20050506, end: 20050506
  12. MYCOPHENOLATE MOFETIL [Suspect]
     Route: 048
     Dates: start: 20050507, end: 20050507
  13. MYCOPHENOLATE MOFETIL [Suspect]
     Route: 048
     Dates: start: 20050508, end: 20050516
  14. MYCOPHENOLATE MOFETIL [Suspect]
     Dosage: 1000MG AM + 500 MG PM.
     Route: 048
     Dates: start: 20050517, end: 20050526
  15. TACROLIMUS [Suspect]
     Dosage: DOSES ADJUSTED TO REACH PREDEFINED TARGET LEVELS.
     Route: 048
     Dates: start: 20050420, end: 20050423
  16. TACROLIMUS [Suspect]
     Dosage: ADVERSE EVENT/TOXICITY
     Route: 048
     Dates: start: 20050424, end: 20050424
  17. TACROLIMUS [Suspect]
     Route: 048
     Dates: start: 20050426, end: 20050426
  18. TACROLIMUS [Suspect]
     Dosage: DOSES ADJUSTED TO REACH PREDEFINED TARGET LEVELS.
     Route: 048
     Dates: start: 20050429, end: 20050504
  19. TACROLIMUS [Suspect]
     Dosage: ADVERSE EVENT/TOXICITY
     Route: 048
     Dates: start: 20050505, end: 20050505
  20. TACROLIMUS [Suspect]
     Dosage: DOSE ADJUSTED TO REACH PREDEFINED TARGET LEVELS.
     Route: 048
     Dates: start: 20050506, end: 20050506
  21. TACROLIMUS [Suspect]
     Dosage: ADVERSE EVENT/TOXICITY.
     Route: 048
     Dates: start: 20050507, end: 20050507
  22. TACROLIMUS [Suspect]
     Route: 048
     Dates: start: 20050508, end: 20050508
  23. TACROLIMUS [Suspect]
     Route: 048
     Dates: start: 20050509, end: 20050509
  24. TACROLIMUS [Suspect]
     Dosage: DOSES ADJUSTED TO REACH PREDEFINED TARGET LEVELS.
     Route: 048
     Dates: start: 20050510
  25. HYDROCORTISONE [Suspect]
     Dosage: DOSES TAPERED ACCORDING TO LOCAL PROTOCOL.
     Route: 065
     Dates: start: 20050415
  26. HYDROCORTISONE [Suspect]
     Route: 065
  27. PREDNISOLONE [Suspect]
     Dosage: DOSES TAPERED ACCORDING TO LOCAL PROTOCOL.
     Route: 065
     Dates: start: 20050418, end: 20050423
  28. PREDNISOLONE [Suspect]
     Dosage: ADVERSE EVENT/TOXICITY
     Route: 065
     Dates: start: 20050424, end: 20050424
  29. PREDNISOLONE [Suspect]
     Dosage: ADVERSE EVENT/TOXICITY
     Route: 065
     Dates: start: 20050426, end: 20050426
  30. PREDNISOLONE [Suspect]
     Dosage: TAPERED ACCORDING TO LOCAL PROTOCOL
     Route: 065
     Dates: start: 20050427, end: 20050504
  31. PREDNISOLONE [Suspect]
     Dosage: ADVERSE EVENT/TOXICITY
     Route: 065
     Dates: start: 20050505, end: 20050505
  32. PREDNISOLONE [Suspect]
     Route: 065
     Dates: start: 20050506, end: 20050507
  33. PREDNISOLONE [Suspect]
     Dosage: DOSES TAPERED ACCORDING TO LOCAL PROTOCOL.
     Route: 065
     Dates: start: 20050508
  34. TAZOCIN [Concomitant]
     Indication: ANTIBIOTIC LEVEL
     Dates: start: 20050415
  35. FLUCONAZOLE [Concomitant]
     Indication: LOCAL ANTIFUNGAL TREATMENT
     Dates: start: 20050415, end: 20050531
  36. CALCIUM CHLORIDE [Concomitant]
     Indication: UNEVALUABLE EVENT
     Dates: start: 20050415
  37. POTASSIUM CHLORIDE [Concomitant]
     Indication: UNEVALUABLE EVENT
     Dates: start: 20050509, end: 20050614
  38. ALFENTANIL [Concomitant]
     Dates: start: 20050415, end: 20050415
  39. PROPOFOL [Concomitant]
     Indication: ANAESTHESIA
     Dates: start: 20050415, end: 20050614
  40. TRACRIUM [Concomitant]
     Dates: start: 20050415, end: 20050415
  41. NORADRENALINE [Concomitant]
     Dates: start: 20050415, end: 20050415
  42. TRASYLOL [Concomitant]
     Dates: start: 20050415, end: 20050415
  43. MORPHINE [Concomitant]
     Dates: start: 20050415, end: 20050503
  44. MEROPENEM [Concomitant]
     Indication: ANTIBIOTIC LEVEL
     Dates: start: 20050501, end: 20050613
  45. VANCOMYCIN [Concomitant]
     Indication: INFECTION
     Dates: start: 20050504, end: 20050614
  46. VALGANCICLOVIR [Concomitant]
     Indication: SYSTEMIC ANTIVIRAL TREATMENT
     Dates: start: 20050504, end: 20050613
  47. ASPIRIN [Concomitant]
     Indication: PROPHYLAXIS
     Dates: start: 20050427, end: 20050507
  48. COTRIM [Concomitant]
     Indication: ANTIBIOTIC LEVEL
     Dates: start: 20050427, end: 20050613
  49. CYCLIZINE [Concomitant]
     Dates: start: 20050504, end: 20050614
  50. NYSTATIN [Concomitant]
     Dates: start: 20050426, end: 20050614
  51. PARACETAMOL [Concomitant]
     Dates: start: 20050426, end: 20050614
  52. LANSOPRAZOLE [Concomitant]
     Dates: start: 20050427, end: 20050614
  53. ALBUMIN (HUMAN) [Concomitant]
     Dates: start: 20050504, end: 20050506
  54. METOCLOPRAMIDE [Concomitant]
     Dates: start: 20050426, end: 20050504
  55. TRAMADOL HCL [Concomitant]
     Dates: start: 20050504, end: 20050614
  56. LACTULOSE [Concomitant]
     Dates: start: 20050430, end: 20050501
  57. METRONIDAZOLE [Concomitant]
     Dates: start: 20050504, end: 20050614
  58. CIPROXIN [Concomitant]
     Dates: start: 20050426, end: 20050429
  59. ATROVENT [Concomitant]
     Dates: start: 20050523, end: 20050523
  60. MIDAZOLAM HCL [Concomitant]
     Dates: start: 20050505, end: 20050505
  61. OMEPRAZOLE [Concomitant]
     Dates: start: 20050507, end: 20050511
  62. ESOMEPRAZOLE [Concomitant]
     Dates: start: 20050506, end: 20050614
  63. VITAMIN K [Concomitant]
     Dates: start: 20050507, end: 20050527
  64. ACETYLCYSTEINE [Concomitant]
     Dates: start: 20050505, end: 20050614
  65. SUCRALFATE [Concomitant]
     Dates: start: 20050506, end: 20050506
  66. BUDESONIDE [Concomitant]
     Dates: start: 20050529, end: 20050614
  67. MUPIROCIN [Concomitant]
     Indication: PROPHYLAXIS
     Dates: start: 20050527, end: 20050614
  68. MORPHINE SULFATE [Concomitant]
     Dosage: INFUSION.
     Dates: start: 20050427, end: 20050614
  69. IPRATROPIUM BROMIDE [Concomitant]
     Dates: start: 20050529, end: 20050613
  70. CHLORHEXIDINE [Concomitant]
     Dates: start: 20050528, end: 20050613

REACTIONS (16)
  - ASCITES INFECTION [None]
  - BLOOD ALBUMIN DECREASED [None]
  - BLOOD CULTURE POSITIVE [None]
  - DEATH [None]
  - ENTEROCOCCAL INFECTION [None]
  - ESCHERICHIA INFECTION [None]
  - GASTROINTESTINAL HAEMORRHAGE [None]
  - HAEMATEMESIS [None]
  - HAEMOGLOBIN DECREASED [None]
  - LACERATION [None]
  - OEDEMA PERIPHERAL [None]
  - OXYGEN SATURATION DECREASED [None]
  - PLEURAL EFFUSION [None]
  - RENAL IMPAIRMENT [None]
  - SMALL INTESTINAL HAEMORRHAGE [None]
  - WOUND SECRETION [None]
